FAERS Safety Report 11364246 (Version 1)
Quarter: 2015Q3

REPORT INFORMATION
  Report Type: Spontaneous
  Country: US (occurrence: None)
  Receive Date: 20150810
  Receipt Date: 20150810
  Transmission Date: 20151125
  Serious: No
  Sender: FDA-Public Use
  Company Number: None

PATIENT
  Age: 74 Year
  Sex: Male

DRUGS (11)
  1. BUMETANIDE. [Concomitant]
     Active Substance: BUMETANIDE
  2. COUMADIN [Concomitant]
     Active Substance: WARFARIN SODIUM
  3. REPAGLINIDE. [Concomitant]
     Active Substance: REPAGLINIDE
  4. PLAVIX [Concomitant]
     Active Substance: CLOPIDOGREL BISULFATE
  5. INLYTA [Suspect]
     Active Substance: AXITINIB
     Indication: RENAL CANCER
     Route: 048
     Dates: start: 20150611
  6. AFINITOR [Concomitant]
     Active Substance: EVEROLIMUS
  7. COENZYME Q10 [Concomitant]
     Active Substance: UBIDECARENONE
  8. FISH OIL [Concomitant]
     Active Substance: FISH OIL
  9. VOTRIENT [Concomitant]
     Active Substance: PAZOPANIB HYDROCHLORIDE
  10. SUTENT [Concomitant]
     Active Substance: SUNITINIB MALATE
  11. VITAMIN D [Concomitant]
     Active Substance: CHOLECALCIFEROL

REACTIONS (1)
  - Flatulence [None]
